FAERS Safety Report 4376220-1 (Version None)
Quarter: 2004Q2

REPORT INFORMATION
  Report Type: 
  Country: None (occurrence: None)
  Receive Date: 20040607
  Receipt Date: 20040402
  Transmission Date: 20050107
  Serious: Yes (Hospitalization)
  Sender: FDA-Public Use
  Company Number: US-SHR-04-022861

PATIENT
  Age: 54 Year
  Sex: Male

DRUGS (1)
  1. CAMPATH [Suspect]
     Indication: LYMPHOMA
     Dosage: 30 MG

REACTIONS (2)
  - DEEP VEIN THROMBOSIS [None]
  - PNEUMONIA [None]
